FAERS Safety Report 23356362 (Version 1)
Quarter: 2024Q1

REPORT INFORMATION
  Report Type: Spontaneous
  Country: US (occurrence: US)
  Receive Date: 20240102
  Receipt Date: 20240102
  Transmission Date: 20240410
  Serious: No
  Sender: FDA-Public Use
  Company Number: US-ABBVIE-5561462

PATIENT

DRUGS (1)
  1. SYNTHROID [Suspect]
     Active Substance: LEVOTHYROXINE SODIUM
     Indication: Product used for unknown indication
     Route: 048

REACTIONS (6)
  - Dry eye [Unknown]
  - Palpitations [Unknown]
  - Nocturia [Unknown]
  - Dry mouth [Unknown]
  - Ventricular extrasystoles [Unknown]
  - Overdose [Unknown]
